FAERS Safety Report 9630847 (Version 1)
Quarter: 2013Q4

REPORT INFORMATION
  Report Type: Spontaneous
  Country: US (occurrence: None)
  Receive Date: 20131016
  Receipt Date: 20131016
  Transmission Date: 20140711
  Serious: Yes (Life-Threatening, Hospitalization)
  Sender: FDA-Public Use
  Company Number: None

PATIENT
  Age: 78 Year
  Sex: Male
  Weight: 76.7 kg

DRUGS (2)
  1. WARFARIN [Suspect]
     Indication: ATRIAL FIBRILLATION
     Dosage: MG EVERY DAY PO
     Route: 048
     Dates: start: 20130909, end: 20130917
  2. ACETAMINOPHEN/CODEINE [Suspect]
     Indication: PAIN
     Dosage: MG PRN PO
     Dates: start: 20130915, end: 20130917

REACTIONS (7)
  - Fall [None]
  - Loss of consciousness [None]
  - Neck pain [None]
  - Confusional state [None]
  - Headache [None]
  - Subdural haemorrhage [None]
  - Gait disturbance [None]
